FAERS Safety Report 7273647-5 (Version None)
Quarter: 2011Q1

REPORT INFORMATION
  Report Type: 
  Country: None (occurrence: None)
  Receive Date: 20110203
  Receipt Date: 20110131
  Transmission Date: 20110831
  Serious: Yes (Hospitalization)
  Sender: FDA-Public Use
  Company Number: US-ABBOTT-11P-163-0701631-00

PATIENT
  Sex: Male

DRUGS (2)
  1. HUMIRA [Suspect]
     Indication: PSORIATIC ARTHROPATHY
     Route: 058
     Dates: start: 20100601
  2. HUMIRA [Suspect]
     Indication: PSORIASIS

REACTIONS (2)
  - CORONARY ARTERY OCCLUSION [None]
  - CARDIAC DISORDER [None]
